FAERS Safety Report 17098388 (Version 1)
Quarter: 2019Q4

REPORT INFORMATION
  Report Type: Spontaneous
  Country: US (occurrence: US)
  Receive Date: 20191105
  Receipt Date: 20191105
  Transmission Date: 20200122
  Serious: Yes (Hospitalization)
  Sender: FDA-Public Use
  Company Number: None

PATIENT
  Age: 67 Year
  Sex: Male
  Weight: 100 kg

DRUGS (7)
  1. FERROUS SULFATE. [Concomitant]
     Active Substance: FERROUS SULFATE
  2. PROTONIX [Concomitant]
     Active Substance: PANTOPRAZOLE SODIUM
  3. CISPLATIN 66MG [Concomitant]
     Indication: PROSTATE CANCER
     Route: 042
  4. CALCIUM CARBONATE. [Concomitant]
     Active Substance: CALCIUM CARBONATE
  5. ENZALUTAMIDE 160MG [Suspect]
     Active Substance: ENZALUTAMIDE
     Indication: PROSTATE CANCER
     Route: 048
  6. ACETAMINOPHEN. [Concomitant]
     Active Substance: ACETAMINOPHEN
  7. VITAMIN D [Concomitant]
     Active Substance: VITAMIN D NOS

REACTIONS (7)
  - Nausea [None]
  - Gastrooesophageal reflux disease [None]
  - Muscle spasms [None]
  - Myalgia [None]
  - Chest discomfort [None]
  - Infusion site pain [None]
  - Muscle tightness [None]

NARRATIVE: CASE EVENT DATE: 20190618
